FAERS Safety Report 13988105 (Version 2)
Quarter: 2018Q1

REPORT INFORMATION
  Report Type: Report from Study
  Country: JP (occurrence: JP)
  Receive Date: 20170919
  Receipt Date: 20180330
  Transmission Date: 20180508
  Serious: Yes (Hospitalization)
  Sender: FDA-Public Use
  Company Number: JP-OTSUKA-2017_019842

PATIENT
  Age: 65 Year
  Sex: Female

DRUGS (27)
  1. ARIPIPRAZOLE (DUAL CHAMBER) [Suspect]
     Active Substance: ARIPIPRAZOLE
     Indication: SCHIZOPHRENIA
     Dosage: 400 MG, SINGLE, GLUTEAL REGION
     Route: 030
     Dates: start: 20170419, end: 20170419
  2. ARIPIPRAZOLE (DUAL CHAMBER) [Suspect]
     Active Substance: ARIPIPRAZOLE
     Dosage: 400 MG, SINGLE, GLUTEAL REGION
     Route: 030
     Dates: start: 20170712, end: 20170712
  3. ARIPIPRAZOLE (DUAL CHAMBER) [Suspect]
     Active Substance: ARIPIPRAZOLE
     Dosage: 400 MG, SINGLE, GLUTEUS
     Route: 030
     Dates: start: 20171004, end: 20171004
  4. ARIPIPRAZOLE (DUAL CHAMBER) [Suspect]
     Active Substance: ARIPIPRAZOLE
     Dosage: 400 MG, SINGLE, GLUTEUS
     Route: 030
     Dates: start: 20171206, end: 20171206
  5. DEPAKENE [Concomitant]
     Active Substance: VALPROIC ACID
     Dosage: 400 MG, QD
     Route: 048
     Dates: start: 20170516
  6. ARIPIPRAZOLE (DUAL CHAMBER) [Suspect]
     Active Substance: ARIPIPRAZOLE
     Dosage: 400 MG, SINGLE, GLUTEAL REGION
     Route: 030
     Dates: start: 20170614, end: 20170614
  7. ARIPIPRAZOLE (DUAL CHAMBER) [Suspect]
     Active Substance: ARIPIPRAZOLE
     Dosage: 400 MG, SINGLE, GLUTEAL REGION
     Route: 030
     Dates: start: 20170809, end: 20170809
  8. BROMPERIDOL [Concomitant]
     Active Substance: BROMPERIDOL
     Indication: SCHIZOPHRENIA
     Dosage: 6 MG, QD
     Route: 048
     Dates: start: 20170608, end: 20170612
  9. ARIPIPRAZOLE (DUAL CHAMBER) [Suspect]
     Active Substance: ARIPIPRAZOLE
     Dosage: 400 MG, SINGLE, GLUTEUS
     Route: 030
     Dates: start: 20180131, end: 20180131
  10. ABILIFY [Concomitant]
     Active Substance: ARIPIPRAZOLE
     Dosage: 3 MG, QD
     Route: 048
     Dates: end: 20170418
  11. ABILIFY [Concomitant]
     Active Substance: ARIPIPRAZOLE
     Dosage: 18 MG, QD
     Route: 048
     Dates: start: 20170516, end: 20170531
  12. HIRNAMIN [Concomitant]
     Active Substance: PHENOTHIAZINE
     Dosage: 5 MG, QD
     Route: 048
     Dates: start: 20170906
  13. ABILIFY [Concomitant]
     Active Substance: ARIPIPRAZOLE
     Indication: SCHIZOPHRENIA
     Dosage: 12 MG, QD
     Route: 048
     Dates: start: 20170419, end: 20170515
  14. ARIPIPRAZOLE (DUAL CHAMBER) [Suspect]
     Active Substance: ARIPIPRAZOLE
     Dosage: 400 MG, SINGLE, GLUTEAL REGION
     Route: 030
     Dates: start: 20170906, end: 20170906
  15. HIRNAMIN [Concomitant]
     Active Substance: PHENOTHIAZINE
     Indication: SCHIZOPHRENIA
     Dosage: 10 MG, QD
     Route: 048
     Dates: start: 20170501, end: 20170905
  16. ARIPIPRAZOLE (DUAL CHAMBER) [Suspect]
     Active Substance: ARIPIPRAZOLE
     Dosage: 400 MG, SINGLE, GLUTEAL REGION
     Route: 030
     Dates: start: 20170322, end: 20170322
  17. ARIPIPRAZOLE (DUAL CHAMBER) [Suspect]
     Active Substance: ARIPIPRAZOLE
     Dosage: 400 MG, SINGLE, GLUTEUS
     Route: 030
     Dates: start: 20171108, end: 20171108
  18. PARLODEL [Concomitant]
     Active Substance: BROMOCRIPTINE MESYLATE
     Indication: PROPHYLAXIS
     Dosage: 5 MG, QD
     Route: 048
     Dates: end: 20170515
  19. BROMPERIDOL [Concomitant]
     Active Substance: BROMPERIDOL
     Dosage: 12 MG, QD
     Route: 048
     Dates: start: 20170613
  20. ARIPIPRAZOLE (DUAL CHAMBER) [Suspect]
     Active Substance: ARIPIPRAZOLE
     Dosage: 400 MG, SINGLE, DELTOID
     Route: 030
     Dates: start: 20170517, end: 20170517
  21. ARIPIPRAZOLE (DUAL CHAMBER) [Suspect]
     Active Substance: ARIPIPRAZOLE
     Dosage: 400 MG, SINGLE, GLUTEUS
     Route: 030
     Dates: start: 20180228
  22. ABILIFY [Concomitant]
     Active Substance: ARIPIPRAZOLE
     Dosage: 24 MG, QD
     Route: 048
     Dates: start: 20170601, end: 20170607
  23. DEPAKENE [Concomitant]
     Active Substance: VALPROIC ACID
     Indication: PRODUCT USED FOR UNKNOWN INDICATION
     Dosage: 300 MG, QD
     Route: 048
     Dates: end: 20170515
  24. BENZALIN [Concomitant]
     Active Substance: NITRAZEPAM
     Indication: PRODUCT USED FOR UNKNOWN INDICATION
     Dosage: 5 MG, QD
     Route: 048
     Dates: start: 20170501
  25. BELSOMRA [Concomitant]
     Active Substance: SUVOREXANT
     Indication: PRODUCT USED FOR UNKNOWN INDICATION
     Dosage: 15 MG, QD
     Route: 048
     Dates: start: 20170906
  26. ARIPIPRAZOLE (DUAL CHAMBER) [Suspect]
     Active Substance: ARIPIPRAZOLE
     Dosage: 400 MG, SINGLE, GLUTEUS
     Route: 030
     Dates: start: 20171227, end: 20171227
  27. TASMOLIN [Concomitant]
     Active Substance: BIPERIDEN
     Indication: PROPHYLAXIS
     Dosage: 2 MG, QD
     Route: 048
     Dates: end: 20170531

REACTIONS (2)
  - Inappropriate schedule of drug administration [Unknown]
  - Social stay hospitalisation [Unknown]
